FAERS Safety Report 8761665 (Version 1)
Quarter: 2012Q4

REPORT INFORMATION
  Report Type: Spontaneous
  Country: US (occurrence: None)
  Receive Date: 20120830
  Receipt Date: 20120830
  Transmission Date: 20130627
  Serious: Yes (Life-Threatening, Hospitalization, Disabling)
  Sender: FDA-Public Use
  Company Number: None

PATIENT
  Age: 70 Year
  Sex: Female
  Weight: 69.67 kg

DRUGS (1)
  1. NITROFURANTOIN [Suspect]
     Indication: PROPHYLAXIS URINARY TRACT INFECTION
     Route: 048
     Dates: start: 20110906, end: 20120730

REACTIONS (10)
  - Pulmonary fibrosis [None]
  - Malaise [None]
  - Respiratory distress [None]
  - Bronchitis [None]
  - Oedema peripheral [None]
  - Respiratory failure [None]
  - Pulmonary oedema [None]
  - Pulmonary hypertension [None]
  - Right ventricular failure [None]
  - Antinuclear antibody positive [None]
